FAERS Safety Report 8141222-6 (Version None)
Quarter: 2012Q1

REPORT INFORMATION
  Report Type: 
  Country: None (occurrence: None)
  Receive Date: 20120216
  Receipt Date: 20120201
  Transmission Date: 20120608
  Serious: Yes (Hospitalization)
  Sender: FDA-Public Use
  Company Number: GB-AMGEN-US195960

PATIENT
  Sex: Female

DRUGS (5)
  1. ENBREL [Suspect]
     Indication: PRODUCT USED FOR UNKNOWN INDICATION
     Dosage: 25 MG, 2 TIMES/WK
     Route: 058
     Dates: start: 20041101, end: 20050318
  2. FLECAINIDE ACETATE [Concomitant]
     Dosage: 100 MG, UNK
     Route: 048
     Dates: start: 19980101
  3. ETIDRATE [Concomitant]
     Dosage: 400 MG, UNK
     Route: 048
     Dates: start: 19980101
  4. METHOTREXATE [Suspect]
     Dosage: 20 MG, QWK
     Route: 048
     Dates: start: 19980301, end: 20050301
  5. PREDNERSONE [Concomitant]
     Dosage: UNK UNK, UNK
     Route: 065
     Dates: start: 19980101

REACTIONS (1)
  - INTERSTITIAL LUNG DISEASE [None]
